FAERS Safety Report 13757138 (Version 1)
Quarter: 2017Q3

REPORT INFORMATION
  Report Type: Spontaneous
  Country: TW (occurrence: TW)
  Receive Date: 20170715
  Receipt Date: 20170715
  Transmission Date: 20171127
  Serious: Yes (Hospitalization, Other)
  Sender: FDA-Public Use
  Company Number: TW-AMGEN-TWNSP2017106349

PATIENT
  Age: 73 Year
  Sex: Female

DRUGS (4)
  1. ARCOXIA [Concomitant]
     Active Substance: ETORICOXIB
     Dosage: UNK
  2. PREDNISOLONE. [Concomitant]
     Active Substance: PREDNISOLONE
     Dosage: UNK
  3. ENBREL [Suspect]
     Active Substance: ETANERCEPT
     Indication: RHEUMATOID ARTHRITIS
     Dosage: 25 MG, BIW
     Route: 058
     Dates: start: 20150306
  4. QUININE [Concomitant]
     Active Substance: QUININE
     Dosage: UNK
     Route: 065

REACTIONS (3)
  - Spinal compression fracture [Recovered/Resolved]
  - Lumbar spinal stenosis [Recovered/Resolved]
  - Condition aggravated [Recovered/Resolved]
